FAERS Safety Report 14221390 (Version 6)
Quarter: 2020Q1

REPORT INFORMATION
  Report Type: Spontaneous
  Country: US (occurrence: US)
  Receive Date: 20171124
  Receipt Date: 20200205
  Transmission Date: 20200409
  Serious: Yes (Other)
  Sender: FDA-Public Use
  Company Number: US-PFIZER INC-2017507350

PATIENT
  Age: 52 Year
  Sex: Female
  Weight: 86 kg

DRUGS (2)
  1. IBRANCE [Suspect]
     Active Substance: PALBOCICLIB
     Indication: BREAST CANCER METASTATIC
  2. IBRANCE [Suspect]
     Active Substance: PALBOCICLIB
     Indication: BREAST CANCER FEMALE
     Dosage: 125 MG, CYCLIC (1 CAPSULE DAILY EVERY 21 DAYS EVERY 28 DAYS)/(DAILY 1-21DAYS)
     Route: 048
     Dates: start: 20171002

REACTIONS (21)
  - Headache [Unknown]
  - Flushing [Unknown]
  - Back pain [Unknown]
  - Abdominal distension [Unknown]
  - Bone pain [Unknown]
  - Weight increased [Unknown]
  - Fatigue [Unknown]
  - Dyspepsia [Unknown]
  - Epistaxis [Unknown]
  - Hypoaesthesia [Unknown]
  - Arthralgia [Recovering/Resolving]
  - Asthenia [Unknown]
  - Product dose omission [Unknown]
  - Inflammation [Unknown]
  - Dizziness [Unknown]
  - Neuropathy peripheral [Unknown]
  - Abdominal discomfort [Unknown]
  - White blood cell count decreased [Unknown]
  - Peripheral swelling [Unknown]
  - Paraesthesia [Unknown]
  - Viral infection [Unknown]
